FAERS Safety Report 15962421 (Version 1)
Quarter: 2019Q1

REPORT INFORMATION
  Report Type: Spontaneous
  Country: US (occurrence: US)
  Receive Date: 20190214
  Receipt Date: 20190214
  Transmission Date: 20190417
  Serious: Yes (Hospitalization)
  Sender: FDA-Public Use
  Company Number: US-BAUSCH-BL-2019-004360

PATIENT
  Age: 81 Year
  Sex: Female
  Weight: 80.81 kg

DRUGS (2)
  1. XIFAXAN [Suspect]
     Active Substance: RIFAXIMIN
     Indication: NON-ALCOHOLIC STEATOHEPATITIS
     Dosage: RESUMED
     Route: 048
     Dates: start: 2018
  2. XIFAXAN [Suspect]
     Active Substance: RIFAXIMIN
     Indication: HEPATIC ENCEPHALOPATHY
     Dosage: MISSED DOSES
     Route: 048
     Dates: end: 201809

REACTIONS (5)
  - Lethargy [Recovered/Resolved]
  - Hospitalisation [Recovered/Resolved]
  - Product dose omission [Recovered/Resolved]
  - Cardiac pacemaker insertion [Unknown]
  - Dyspnoea [Recovered/Resolved]

NARRATIVE: CASE EVENT DATE: 201809
